FAERS Safety Report 4392642-7 (Version None)
Quarter: 2004Q3

REPORT INFORMATION
  Report Type: 
  Country: None (occurrence: None)
  Receive Date: 20040708
  Receipt Date: 20040625
  Transmission Date: 20050211
  Serious: Yes (Hospitalization, Other)
  Sender: FDA-Public Use
  Company Number: PHEH2004US06914

PATIENT
  Age: 46 Year
  Sex: Male

DRUGS (3)
  1. DIOVAN HCT [Suspect]
     Indication: HYPERTENSION
     Dosage: TWO TABLETS, 320/25 MG, DAILY
     Route: 048
     Dates: start: 20030801, end: 20040328
  2. DIOVAN HCT [Suspect]
     Dosage: UNK
     Route: 048
     Dates: start: 20020101, end: 20030801
  3. TRICOR [Concomitant]
     Indication: HYPERLIPIDAEMIA

REACTIONS (15)
  - ANAEMIA [None]
  - BLOOD PRESSURE DECREASED [None]
  - CARDIAC STRESS TEST [None]
  - CATHETERISATION CARDIAC [None]
  - COLLAPSE OF LUNG [None]
  - CONTUSION [None]
  - FATIGUE [None]
  - JAW FRACTURE [None]
  - LOSS OF CONSCIOUSNESS [None]
  - RENAL DISORDER [None]
  - RIB FRACTURE [None]
  - ROAD TRAFFIC ACCIDENT [None]
  - SKIN INJURY [None]
  - VOMITING [None]
  - WEIGHT DECREASED [None]
